FAERS Safety Report 9653403 (Version 1)
Quarter: 2013Q4

REPORT INFORMATION
  Report Type: Spontaneous
  Country: US (occurrence: None)
  Receive Date: 20131028
  Receipt Date: 20131028
  Transmission Date: 20140711
  Serious: Yes (Hospitalization)
  Sender: FDA-Public Use
  Company Number: AUR-APL-2013-08870

PATIENT
  Age: 61 Year
  Sex: Male
  Weight: 87.53 kg

DRUGS (3)
  1. METOPROLOL (METOPROLOL) [Suspect]
     Indication: PRODUCT USED FOR UNKNOWN INDICATION
     Dates: end: 201310
  2. REVATIO [Suspect]
     Indication: PULMONARY HYPERTENSION
     Dosage: 60 MG (20 MG, 3 IN 1 D)
     Dates: start: 201306, end: 201310
  3. ASPIRIN (ACETYLSALICYLIC ACID) [Concomitant]

REACTIONS (1)
  - Lung transplant [None]
